FAERS Safety Report 24718226 (Version 1)
Quarter: 2024Q4

REPORT INFORMATION
  Report Type: Spontaneous
  Country: DE (occurrence: DE)
  Receive Date: 20241210
  Receipt Date: 20241210
  Transmission Date: 20250114
  Serious: Yes (Death, Other)
  Sender: PFIZER
  Company Number: DE-PFIZER INC-202400320626

PATIENT
  Age: 46 Year
  Sex: Female

DRUGS (1)
  1. TALAZOPARIB [Suspect]
     Active Substance: TALAZOPARIB
     Indication: Triple positive breast cancer
     Dosage: CYCLIC

REACTIONS (4)
  - Second primary malignancy [Fatal]
  - B precursor type acute leukaemia [Fatal]
  - Acute myeloid leukaemia [Fatal]
  - Off label use [Unknown]
